FAERS Safety Report 9086604 (Version 2)
Quarter: 2013Q3

REPORT INFORMATION
  Report Type: Spontaneous
  Country: US (occurrence: US)
  Receive Date: 20130131
  Receipt Date: 20130712
  Transmission Date: 20140515
  Serious: Yes (Other)
  Sender: FDA-Public Use
  Company Number: US-ELI_LILLY_AND_COMPANY-US201301007678

PATIENT
  Age: 68 Year
  Sex: Female

DRUGS (3)
  1. HUMALOG LISPRO [Suspect]
     Indication: TYPE 2 DIABETES MELLITUS
     Dosage: 15 U, TID
     Dates: start: 201006
  2. HUMALOG LISPRO [Suspect]
     Dosage: 15 U, TID
  3. LANTUS [Concomitant]
     Dosage: UNK, EACH EVENING

REACTIONS (3)
  - Eye haemorrhage [Unknown]
  - Visual impairment [Not Recovered/Not Resolved]
  - Pain in extremity [Unknown]
